FAERS Safety Report 13962364 (Version 1)
Quarter: 2017Q3

REPORT INFORMATION
  Report Type: Report from Study
  Country: None (occurrence: HU)
  Receive Date: 20170912
  Receipt Date: 20170912
  Transmission Date: 20171128
  Serious: Yes (Hospitalization)
  Sender: FDA-Public Use
  Company Number: HU-ABBVIE-17K-076-2095114-00

PATIENT
  Age: 60 Year
  Sex: Male

DRUGS (4)
  1. DUODOPA [Suspect]
     Active Substance: CARBIDOPA\LEVODOPA
     Indication: PARKINSON^S DISEASE
     Dosage: MORNING DOSE 8ML; CONTINUOUS DOSE 5.8ML/H;EXTRA DOSE 1ML
     Route: 050
     Dates: start: 20140725
  2. PANTOPRAZOLE [Concomitant]
     Active Substance: PANTOPRAZOLE
     Indication: PROPHYLAXIS
     Dosage: 1 TABLET IN THE EVENING
     Route: 048
     Dates: start: 201708
  3. CLEXANE [Concomitant]
     Active Substance: ENOXAPARIN SODIUM
     Indication: PROPHYLAXIS
     Dosage: IN THE EVENING
     Route: 058
     Dates: start: 201708
  4. DUODOPA [Suspect]
     Active Substance: CARBIDOPA\LEVODOPA
     Dosage: MORNING DOSE 8ML; CONTINUOUS DOSE 6.4ML/H;EXTRA DOSE 2ML
     Route: 050
     Dates: start: 2017

REACTIONS (4)
  - Parkinson^s disease [Recovering/Resolving]
  - Polyp [Unknown]
  - Enteritis [Unknown]
  - Asthenia [Recovering/Resolving]

NARRATIVE: CASE EVENT DATE: 201708
